FAERS Safety Report 26022467 (Version 1)
Quarter: 2025Q4

REPORT INFORMATION
  Report Type: Spontaneous
  Country: CA (occurrence: CA)
  Receive Date: 20251110
  Receipt Date: 20251110
  Transmission Date: 20260118
  Serious: Yes (Other)
  Sender: FRESENIUS KABI
  Company Number: CA-FreseniusKabi-FK202515079

PATIENT
  Age: 29 Year
  Sex: Female

DRUGS (2)
  1. USTEKINUMAB [Suspect]
     Active Substance: USTEKINUMAB
     Indication: Crohn^s disease
     Route: 058
  2. USTEKINUMAB [Suspect]
     Active Substance: USTEKINUMAB
     Dosage: FOA: SOLUTION FOR INJECTION
     Route: 058

REACTIONS (2)
  - Off label use [Unknown]
  - Therapy partial responder [Unknown]
